FAERS Safety Report 6733055-X (Version None)
Quarter: 2010Q2

REPORT INFORMATION
  Report Type: 
  Country: None (occurrence: None)
  Receive Date: 20100518
  Receipt Date: 20100504
  Transmission Date: 20101027
  Serious: Yes (Other)
  Sender: FDA-Public Use
  Company Number: 009994

PATIENT
  Sex: Male
  Weight: 82 kg

DRUGS (2)
  1. VIMPAT [Suspect]
     Indication: EPILEPSY
     Dosage: (100 MG BID ORAL)
     Route: 048
     Dates: start: 20091209, end: 20100409
  2. CARBAMAZEPINE [Concomitant]

REACTIONS (2)
  - AGGRESSION [None]
  - HOMICIDAL IDEATION [None]
